FAERS Safety Report 11850320 (Version 1)
Quarter: 2015Q4

REPORT INFORMATION
  Report Type: Spontaneous
  Country: US (occurrence: US)
  Receive Date: 20151218
  Receipt Date: 20151218
  Transmission Date: 20160305
  Serious: No
  Sender: FDA-Public Use
  Company Number: US-JNJFOC-20151110940

PATIENT
  Age: 20 Year
  Sex: Male
  Weight: 136.08 kg

DRUGS (2)
  1. TYLENOL EXTRA STRENGTH [Suspect]
     Active Substance: ACETAMINOPHEN
     Indication: HEADACHE
     Dosage: 4 CAPLETS EVERY 6 HOURS
     Route: 048
     Dates: start: 20151109
  2. TYLENOL EXTRA STRENGTH [Suspect]
     Active Substance: ACETAMINOPHEN
     Indication: NASOPHARYNGITIS
     Dosage: 4 CAPLETS EVERY 6 HOURS
     Route: 048
     Dates: start: 20151109

REACTIONS (2)
  - Drug ineffective [Unknown]
  - Extra dose administered [Unknown]
